FAERS Safety Report 8375819-5 (Version None)
Quarter: 2012Q2

REPORT INFORMATION
  Report Type: 
  Country: None (occurrence: None)
  Receive Date: 20120522
  Receipt Date: 20120515
  Transmission Date: 20120825
  Serious: Yes (Death, Other)
  Sender: FDA-Public Use
  Company Number: US-BAYER-200940065NA

PATIENT
  Age: 76 Year
  Sex: Male
  Weight: 81.633 kg

DRUGS (24)
  1. TRASYLOL [Suspect]
     Indication: AORTIC VALVE REPLACEMENT
     Dosage: 200 KIU
     Route: 042
     Dates: start: 20070608, end: 20070608
  2. ASPIRIN [Concomitant]
     Indication: PRODUCT USED FOR UNKNOWN INDICATION
     Dosage: 81 MG, QD
     Route: 048
     Dates: start: 20060101
  3. HEPARIN [Concomitant]
     Indication: PRODUCT USED FOR UNKNOWN INDICATION
     Dosage: 10,000 UNITS
     Route: 042
     Dates: start: 20070608
  4. RED BLOOD CELLS [Concomitant]
     Dosage: 6 U, UNK
     Dates: start: 20070608
  5. FRESH FROZEN PLASMA [Concomitant]
     Dosage: 5 U, UNK
     Dates: start: 20070608
  6. LORTAB [Concomitant]
     Dosage: UNK
     Dates: start: 20070101, end: 20070101
  7. ANCEF [Concomitant]
     Dosage: UNK
     Dates: start: 20070608
  8. LEVAQUIN [Concomitant]
     Indication: PRODUCT USED FOR UNKNOWN INDICATION
     Dosage: 500 MG, UNK
     Dates: start: 20070608
  9. CALCIUM CHLORIDE [Concomitant]
     Dosage: UNK
     Dates: start: 20070608
  10. CARTIA XT [Concomitant]
     Dosage: 120 MG, QD
     Route: 048
     Dates: start: 20060101
  11. FERROUS SULFATE TAB [Concomitant]
     Dosage: 325 MG, QD
     Route: 048
  12. PLATELETS [Concomitant]
     Dosage: 1 U, UNK
     Dates: start: 20070608
  13. FERROUS SULFATE TAB [Concomitant]
     Indication: PRODUCT USED FOR UNKNOWN INDICATION
     Dosage: 325 MG, BID
     Route: 048
  14. PROPOFOL [Concomitant]
     Indication: PRODUCT USED FOR UNKNOWN INDICATION
     Dosage: UNK
     Route: 042
     Dates: start: 20070608
  15. INSULIN [Concomitant]
     Indication: PRODUCT USED FOR UNKNOWN INDICATION
     Dosage: 5.9 UNITS PER HOUR
     Route: 042
     Dates: start: 20070608
  16. SUFENTANIL CITRATE [Concomitant]
     Indication: PRODUCT USED FOR UNKNOWN INDICATION
     Dosage: UNK
     Dates: start: 20070608
  17. ENALAPRIL MALEATE [Concomitant]
     Indication: PRODUCT USED FOR UNKNOWN INDICATION
     Dosage: 5 MG, QD
     Route: 048
     Dates: start: 20070101
  18. FLOMAX [Concomitant]
     Indication: PRODUCT USED FOR UNKNOWN INDICATION
     Dosage: 0.4 MG, QD
     Route: 048
  19. METOPROLOL [Concomitant]
     Dosage: 50 MG, QD
     Dates: start: 20070101
  20. SIMVASTATIN [Concomitant]
     Indication: PRODUCT USED FOR UNKNOWN INDICATION
     Dosage: 20 MG, QD
     Route: 048
  21. PHENYLEPHRINE HCL [Concomitant]
     Indication: PRODUCT USED FOR UNKNOWN INDICATION
     Dosage: UNK
     Route: 042
     Dates: start: 20070608
  22. CRYOPRECIPITATES [Concomitant]
     Dosage: 20 U, UNK
     Dates: start: 20070608
  23. METOPROLOL [Concomitant]
     Indication: PRODUCT USED FOR UNKNOWN INDICATION
     Dosage: 50 MG, BID
     Route: 048
  24. ETOMIDATE [Concomitant]
     Dosage: UNK
     Dates: start: 20070608

REACTIONS (13)
  - INJURY [None]
  - ANXIETY [None]
  - ANHEDONIA [None]
  - EMOTIONAL DISTRESS [None]
  - DEATH [None]
  - RENAL IMPAIRMENT [None]
  - RENAL INJURY [None]
  - FEAR [None]
  - MULTI-ORGAN FAILURE [None]
  - STRESS [None]
  - UNEVALUABLE EVENT [None]
  - RENAL FAILURE [None]
  - PAIN [None]
